FAERS Safety Report 17449596 (Version 1)
Quarter: 2020Q1

REPORT INFORMATION
  Report Type: Spontaneous
  Country: DE (occurrence: DE)
  Receive Date: 20200224
  Receipt Date: 20200224
  Transmission Date: 20200409
  Serious: Yes (Hospitalization, Other)
  Sender: FDA-Public Use
  Company Number: DE-UCBSA-2019055056

PATIENT
  Age: 74 Year
  Sex: Male

DRUGS (5)
  1. VIRIDAL DUO [Suspect]
     Active Substance: ALPROSTADIL
     Indication: ERECTILE DYSFUNCTION
     Dosage: 10 MILLIGRAM
  2. VIRIDAL DUO [Suspect]
     Active Substance: ALPROSTADIL
     Dosage: 20 ?G
  3. MARCUMAR [Concomitant]
     Active Substance: PHENPROCOUMON
     Indication: PRODUCT USED FOR UNKNOWN INDICATION
  4. CIPROFLOX [CIPROFLOXACIN HYDROCHLORIDE] [Suspect]
     Active Substance: CIPROFLOXACIN HYDROCHLORIDE
     Indication: PRODUCT USED FOR UNKNOWN INDICATION
     Dosage: UNK
  5. VIRIDAL DUO [Suspect]
     Active Substance: ALPROSTADIL
     Dosage: 10 ?G

REACTIONS (4)
  - Haemorrhage [Unknown]
  - Drug ineffective [Unknown]
  - Priapism [Unknown]
  - Cardiac flutter [Unknown]

NARRATIVE: CASE EVENT DATE: 201201
